FAERS Safety Report 6409069-6 (Version None)
Quarter: 2009Q4

REPORT INFORMATION
  Report Type: 
  Country: None (occurrence: None)
  Receive Date: 20091019
  Receipt Date: 20091005
  Transmission Date: 20100525
  Serious: Yes (Hospitalization)
  Sender: FDA-Public Use
  Company Number: 2009-04171

PATIENT
  Age: 61 Year
  Sex: Female
  Weight: 219.9 kg

DRUGS (16)
  1. VELCADE [Suspect]
     Indication: MULTIPLE MYELOMA
     Dosage: 1.3 MG/M2, INTRAVENOUS
     Route: 042
     Dates: start: 20090806, end: 20090922
  2. REVLIMID [Suspect]
     Indication: MULTIPLE MYELOMA
     Dosage: 25 MG, ORAL
     Route: 048
     Dates: start: 20090806, end: 20090922
  3. DOXIL [Suspect]
     Indication: MULTIPLE MYELOMA
     Dosage: 30 MG/M2, INTRAVENOUS
     Route: 042
  4. DEXAMETHASONE TAB [Suspect]
     Indication: MULTIPLE MYELOMA
     Dosage: 20 MG, ORAL
     Route: 048
  5. ACYCLOVIR [Concomitant]
  6. ASPIRIN [Concomitant]
  7. ATORVASTATIN CALCIUM [Concomitant]
  8. CALCIUM (CALCIUM) [Concomitant]
  9. CITALOPRAM HYDROBROMIDE [Concomitant]
  10. CLOTRIMAZOLE [Concomitant]
  11. ENOXAPARIN SODIUM [Concomitant]
  12. VICODIN ES [Concomitant]
  13. PREVACID [Concomitant]
  14. ZOFRAN [Concomitant]
  15. ULTRAM [Concomitant]
  16. AMBIEN [Concomitant]

REACTIONS (4)
  - ABASIA [None]
  - DIVERTICULITIS [None]
  - ORAL DISCHARGE [None]
  - PYREXIA [None]
